FAERS Safety Report 5836257-X (Version None)
Quarter: 2008Q3

REPORT INFORMATION
  Report Type: 
  Country: None (occurrence: None)
  Receive Date: 20080807
  Receipt Date: 20080728
  Transmission Date: 20090109
  Serious: Yes (Other)
  Sender: FDA-Public Use
  Company Number: US-JNJFOC-20080204520

PATIENT
  Sex: Female
  Weight: 81.65 kg

DRUGS (6)
  1. REMICADE [Suspect]
     Route: 042
  2. REMICADE [Suspect]
     Route: 042
  3. REMICADE [Suspect]
     Indication: RHEUMATOID ARTHRITIS
     Route: 042
  4. REMICADE [Suspect]
     Indication: PSORIASIS
     Route: 042
  5. TYLENOL [Concomitant]
     Indication: PREMEDICATION
  6. CLARITIN [Concomitant]
     Indication: PREMEDICATION

REACTIONS (8)
  - ERYTHEMA [None]
  - FEELING HOT [None]
  - HEADACHE [None]
  - INFUSION RELATED REACTION [None]
  - MUSCLE SPASMS [None]
  - MYALGIA [None]
  - NAUSEA [None]
  - SURGERY [None]
